FAERS Safety Report 20603788 (Version 1)
Quarter: 2022Q1

REPORT INFORMATION
  Report Type: Spontaneous
  Country: US (occurrence: None)
  Receive Date: 20220316
  Receipt Date: 20220316
  Transmission Date: 20220424
  Serious: Yes (Hospitalization)
  Sender: FDA-Public Use
  Company Number: None

PATIENT
  Age: 61 Year
  Sex: Male
  Weight: 78 kg

DRUGS (1)
  1. VERAPAMIL [Suspect]
     Active Substance: VERAPAMIL HYDROCHLORIDE
     Indication: Hypertension
     Dosage: FREQUENCY : DAILY;?
     Route: 048
     Dates: start: 20210211, end: 20211214

REACTIONS (4)
  - Atrioventricular block second degree [None]
  - Bradycardia [None]
  - Heart rate irregular [None]
  - Therapy cessation [None]

NARRATIVE: CASE EVENT DATE: 20211210
